FAERS Safety Report 10608219 (Version 3)
Quarter: 2015Q1

REPORT INFORMATION
  Report Type: Spontaneous
  Country: GB (occurrence: GB)
  Receive Date: 20141125
  Receipt Date: 20150109
  Transmission Date: 20150720
  Serious: Yes (Other)
  Sender: FDA-Public Use
  Company Number: GB-SA-2014SA158183

PATIENT
  Age: 45 Year
  Sex: Male

DRUGS (3)
  1. FANSIDAR [Suspect]
     Active Substance: PYRIMETHAMINE\SULFADOXINE
     Indication: MALARIA PROPHYLAXIS
     Dosage: AN EXTRA TWO TABLETS
     Route: 065
  2. CHLOROQUINE [Suspect]
     Active Substance: CHLOROQUINE\CHLOROQUINE PHOSPHATE
     Indication: MALARIA PROPHYLAXIS
     Dosage: 150 MG EVERY THIRD DAY (7 TABLETS IN TOTAL)
     Route: 065
  3. FANSIDAR [Suspect]
     Active Substance: PYRIMETHAMINE\SULFADOXINE
     Indication: MALARIA PROPHYLAXIS
     Dosage: (SULFADOXINE 500 MG AND PYRIMETHAMINE 25 MG), (SIX TABLETS IN TOTAL)
     Route: 065

REACTIONS (16)
  - Lymphadenopathy [Unknown]
  - Hepatic enzyme increased [Recovering/Resolving]
  - Eosinophilia [Unknown]
  - Hepatosplenomegaly [Recovering/Resolving]
  - Acanthosis [Recovering/Resolving]
  - Jaundice [Recovering/Resolving]
  - Malaise [Unknown]
  - Dermatitis exfoliative [Recovering/Resolving]
  - Lymphadenitis [Unknown]
  - Pyrexia [Unknown]
  - Diarrhoea [Unknown]
  - Hepatitis [Recovering/Resolving]
  - Mycosis fungoides [Unknown]
  - Condition aggravated [Unknown]
  - Blood immunoglobulin M increased [Unknown]
  - Parakeratosis [Recovering/Resolving]
